FAERS Safety Report 18480473 (Version 1)
Quarter: 2020Q4

REPORT INFORMATION
  Report Type: Spontaneous
  Country: GB (occurrence: GB)
  Receive Date: 20201109
  Receipt Date: 20201109
  Transmission Date: 20210114
  Serious: Yes (Hospitalization, Other)
  Sender: FDA-Public Use
  Company Number: GB-PFIZER INC-2020430413

PATIENT
  Age: 69 Year
  Sex: Male

DRUGS (2)
  1. DOCETAXEL. [Suspect]
     Active Substance: DOCETAXEL
     Indication: PROSTATE CANCER
     Dosage: 75 MG/M2
     Route: 042
     Dates: start: 20171027, end: 20171027
  2. DOCETAXEL. [Suspect]
     Active Substance: DOCETAXEL
     Dosage: 75 MG/M2
     Route: 042
     Dates: start: 20180209, end: 20180209

REACTIONS (3)
  - Neutropenic sepsis [Recovered/Resolved]
  - Rhinitis [Unknown]
  - Sputum discoloured [Unknown]

NARRATIVE: CASE EVENT DATE: 201712
